FAERS Safety Report 5377241-2 (Version None)
Quarter: 2007Q3

REPORT INFORMATION
  Report Type: 
  Country: None (occurrence: None)
  Receive Date: 20070703
  Receipt Date: 20070622
  Transmission Date: 20080115
  Serious: Yes (Hospitalization)
  Sender: FDA-Public Use
  Company Number: CA-ELI_LILLY_AND_COMPANY-CA200705002373

PATIENT
  Age: 54 Year
  Sex: Female

DRUGS (8)
  1. FORTEO [Suspect]
     Indication: OSTEOPOROSIS
     Dosage: 20 UG, DAILY (1/D)
     Route: 058
     Dates: start: 20070122
  2. CORTISONE ACETATE [Concomitant]
  3. NEXIUM [Concomitant]
  4. VITAMIN D [Concomitant]
  5. EURO-K8 [Concomitant]
  6. APO-CAL [Concomitant]
  7. HYDROXYCHLOROQUINE SULFATE [Concomitant]
  8. ACETAMINOPHEN [Concomitant]
     Dosage: UNK, AS NEEDED

REACTIONS (1)
  - MYALGIA [None]
